FAERS Safety Report 10227777 (Version 1)
Quarter: 2014Q2

REPORT INFORMATION
  Report Type: Spontaneous
  Country: US (occurrence: None)
  Receive Date: 20140606
  Receipt Date: 20140606
  Transmission Date: 20141212
  Serious: Yes (Hospitalization)
  Sender: FDA-Public Use
  Company Number: UNT-2014-001337

PATIENT
  Age: 67 Year
  Sex: Female

DRUGS (2)
  1. TYVASO (TREPROSTINIL SODIUM) INHALATION GAS, 0.6MG/ML [Suspect]
     Indication: PULMONARY ARTERIAL HYPERTENSION
     Route: 055
     Dates: start: 20130118
  2. TRACLEER /01587701/ (BOSENTAN) UNKNOWN [Concomitant]

REACTIONS (2)
  - Dyspnoea [None]
  - Pulmonary oedema [None]
